FAERS Safety Report 10930285 (Version 1)
Quarter: 2015Q1

REPORT INFORMATION
  Report Type: Spontaneous
  Country: US (occurrence: US)
  Receive Date: 20150319
  Receipt Date: 20150319
  Transmission Date: 20150721
  Serious: No
  Sender: FDA-Public Use
  Company Number: US-PFIZER INC-2015097447

PATIENT
  Age: 37 Year
  Sex: Female

DRUGS (5)
  1. EFFEXOR [Suspect]
     Active Substance: VENLAFAXINE HYDROCHLORIDE
     Dosage: UNK
  2. ASPIRN [Suspect]
     Active Substance: ASPIRIN
     Dosage: UNK
  3. CYMBALTA [Suspect]
     Active Substance: DULOXETINE HYDROCHLORIDE
     Dosage: UNK
  4. ZITHROMAX [Suspect]
     Active Substance: AZITHROMYCIN DIHYDRATE
     Dosage: UNK
  5. LYRICA [Suspect]
     Active Substance: PREGABALIN
     Dosage: UNK

REACTIONS (1)
  - Drug hypersensitivity [Unknown]
